FAERS Safety Report 5239188-1 (Version None)
Quarter: 2007Q1

REPORT INFORMATION
  Report Type: 
  Country: None (occurrence: None)
  Receive Date: 20070212
  Receipt Date: 20070201
  Transmission Date: 20070707
  Serious: Yes (Hospitalization)
  Sender: FDA-Public Use
  Company Number: S06-FRA-05455-01

PATIENT
  Age: 37 Year
  Sex: Female
  Weight: 51 kg

DRUGS (11)
  1. CITALOPRAM HYDROBROMIDE [Suspect]
     Dosage: 20 MG QD PO
     Route: 048
     Dates: start: 20060914, end: 20060917
  2. TIAPRIDAL (TIAPRIDE) [Suspect]
     Indication: AGITATION
     Dosage: 50 MG QD PO
     Route: 048
     Dates: start: 20060919
  3. CHLORPROMAZINE HCL [Concomitant]
  4. TERCIAN (CYAMEMAZINE) [Concomitant]
  5. ATHYMIL (MIANSERIN HYDROCHLORIDE) [Suspect]
     Dates: start: 20060919
  6. IMOVANE (ZOPICLONE) [Concomitant]
  7. CORTICOSTEROIDS [Concomitant]
  8. KALETRA [Concomitant]
  9. VIRAMUNE [Concomitant]
  10. VIDEX [Concomitant]
  11. FUZEON [Concomitant]

REACTIONS (4)
  - BRADYCARDIA [None]
  - ELECTROCARDIOGRAM Q WAVES [None]
  - HYPOTENSION [None]
  - SOMNOLENCE [None]
